FAERS Safety Report 4492671-9 (Version None)
Quarter: 2004Q4

REPORT INFORMATION
  Report Type: 
  Country: None (occurrence: None)
  Receive Date: 20041102
  Receipt Date: 20041102
  Transmission Date: 20050328
  Serious: Yes (Life-Threatening, Hospitalization)
  Sender: FDA-Public Use
  Company Number: None

PATIENT
  Sex: Female

DRUGS (2)
  1. OXYTOCIN 20 UNITS IN 1L D5LR INJ; BY COMPASS [Suspect]
     Indication: LABOUR INDUCTION
  2. OXYTOCIN 20 UNITS IN 1L D5LR INJ; BY COMPASS [Suspect]
     Indication: LABOUR INDUCTION

REACTIONS (6)
  - CAESAREAN SECTION [None]
  - DRUG INEFFECTIVE [None]
  - LABOUR ONSET DELAYED [None]
  - MEDICATION ERROR [None]
  - PHARMACEUTICAL PRODUCT COMPLAINT [None]
  - POSTPARTUM HAEMORRHAGE [None]
